FAERS Safety Report 4271263-0 (Version None)
Quarter: 2004Q1

REPORT INFORMATION
  Report Type: 
  Country: None (occurrence: None)
  Receive Date: 20040114
  Receipt Date: 20040114
  Transmission Date: 20041129
  Serious: Yes (Other)
  Sender: FDA-Public Use
  Company Number: None

PATIENT
  Age: 47 Year
  Sex: Male
  Weight: 113.6 kg

DRUGS (8)
  1. AVONEX [Suspect]
     Indication: MULTIPLE SCLEROSIS
     Dosage: 30 MCG/0.5ML IM QWK
     Route: 030
     Dates: start: 20030919, end: 20031111
  2. MODAFANIL [Concomitant]
  3. TAMSULOSIN [Concomitant]
  4. ALOPROSTADIL [Concomitant]
  5. CITALOPRAM [Concomitant]
  6. APAP TAB [Concomitant]
  7. IBUPROFEN [Concomitant]
  8. SENNOSIDES [Concomitant]

REACTIONS (6)
  - ABDOMINAL PAIN [None]
  - CHILLS [None]
  - HYPERHIDROSIS [None]
  - NAUSEA [None]
  - PHARMACEUTICAL PRODUCT COMPLAINT [None]
  - VOMITING [None]
